FAERS Safety Report 7493448-2 (Version None)
Quarter: 2011Q2

REPORT INFORMATION
  Report Type: 
  Country: None (occurrence: None)
  Receive Date: 20110520
  Receipt Date: 20110504
  Transmission Date: 20111010
  Serious: No
  Sender: FDA-Public Use
  Company Number: US-B.I. PHARMACEUTICALS,INC./RIDGEFIELD-2011-BP-05671BP

PATIENT
  Sex: Female

DRUGS (8)
  1. TAMOXIFEN CITRATE [Concomitant]
     Indication: BREAST CANCER
     Dosage: 20 MG
  2. ALPRAZOLAM [Concomitant]
     Dosage: 0.5 MG
  3. SYNTHROID [Concomitant]
     Indication: HYPOTHYROIDISM
     Dosage: 150 MG
  4. BONIVA [Concomitant]
     Indication: OSTEOPENIA
  5. FLECAINIDE ACETATE [Concomitant]
     Indication: ATRIAL FIBRILLATION
     Dosage: 100 MG
  6. CALCIUM CARBONATE [Concomitant]
     Indication: OSTEOPENIA
  7. PRADAXA [Suspect]
     Indication: ATRIAL FIBRILLATION
     Dosage: 300 MG
     Route: 048
     Dates: start: 20110216, end: 20110304
  8. TRICOR [Concomitant]
     Indication: BLOOD CHOLESTEROL INCREASED
     Dosage: 145 MG

REACTIONS (4)
  - GAIT DISTURBANCE [None]
  - ASTHENIA [None]
  - DYSPEPSIA [None]
  - FATIGUE [None]
